FAERS Safety Report 8902560 (Version 3)
Quarter: 2013Q1

REPORT INFORMATION
  Report Type: Spontaneous
  Country: US (occurrence: US)
  Receive Date: 20121112
  Receipt Date: 20130225
  Transmission Date: 20140127
  Serious: Yes (Hospitalization)
  Sender: FDA-Public Use
  Company Number: US-VERTEX PHARMACEUTICAL INC.-2012-024217

PATIENT
  Age: 46 None
  Sex: Female
  Weight: 85 kg

DRUGS (3)
  1. INCIVEK [Suspect]
     Indication: HEPATITIS C
     Dosage: 2250 MG, QD
     Dates: start: 20120518
  2. PEGASYS [Suspect]
     Indication: HEPATITIS C
     Dosage: 180 ?G, UNK
     Dates: start: 20120518
  3. COPEGUS [Suspect]
     Indication: HEPATITIS C
     Dosage: 200 MG, QD
     Dates: start: 20120519

REACTIONS (14)
  - Non-cardiac chest pain [Recovered/Resolved]
  - Periodontitis [Recovered/Resolved]
  - Bone loss [Recovered/Resolved]
  - Mitral valve stenosis [Recovered/Resolved]
  - Chest pain [Recovered/Resolved]
  - Dyspnoea [Recovered/Resolved]
  - Fall [Not Recovered/Not Resolved]
  - Mitral valve calcification [Recovered/Resolved]
  - Anticoagulation drug level below therapeutic [Recovered/Resolved]
  - Aortic valve replacement [Recovered/Resolved]
  - Mitral valve replacement [Recovered/Resolved]
  - Mitral valve stenosis [Recovered/Resolved]
  - Asthenia [Recovered/Resolved]
  - Syncope [Recovered/Resolved]
